FAERS Safety Report 8785485 (Version 2)
Quarter: 2012Q4

REPORT INFORMATION
  Report Type: 
  Country: US (occurrence: US)
  Receive Date: 20120914
  Receipt Date: 20120924
  Transmission Date: 20130627
  Serious: No
  Sender: FDA-Public Use
  Company Number: US-TEVA-359192USA

PATIENT
  Age: 32 Year
  Sex: Female
  Weight: 68.1 kg

DRUGS (2)
  1. PLAN B ONE-STEP [Suspect]
     Indication: POST COITAL CONTRACEPTION
     Dosage: 1.5 Milligram Daily;
     Route: 048
     Dates: start: 20120727, end: 20120727
  2. PLAN B ONE-STEP [Suspect]
     Dosage: 1.5 Milligram Daily;
     Route: 048
     Dates: start: 20120731, end: 20120731

REACTIONS (3)
  - Intentional drug misuse [Unknown]
  - Menstruation irregular [Recovered/Resolved]
  - Menstruation delayed [Not Recovered/Not Resolved]
